FAERS Safety Report 6375272-7 (Version None)
Quarter: 2009Q3

REPORT INFORMATION
  Report Type: 
  Country: None (occurrence: None)
  Receive Date: 20090924
  Receipt Date: 20090917
  Transmission Date: 20100115
  Serious: Yes (Death)
  Sender: FDA-Public Use
  Company Number: A0800769A

PATIENT
  Age: 56 Year
  Sex: Female

DRUGS (1)
  1. PROMACTA [Suspect]
     Indication: HEPATITIS C
     Dosage: 25MG PER DAY
     Route: 048

REACTIONS (1)
  - POST PROCEDURAL COMPLICATION [None]
